FAERS Safety Report 4760146-5 (Version None)
Quarter: 2005Q3

REPORT INFORMATION
  Report Type: 
  Country: None (occurrence: None)
  Receive Date: 20050831
  Receipt Date: 20050815
  Transmission Date: 20060218
  Serious: Yes (Other)
  Sender: FDA-Public Use
  Company Number: USA0508105511

PATIENT
  Age: 55 Year
  Sex: Female

DRUGS (3)
  1. PROZAC [Suspect]
     Indication: DEPRESSION
     Dosage: 60 MG
  2. COUMADIN [Concomitant]
  3. PROCRIT [Concomitant]

REACTIONS (7)
  - BLOOD DISORDER [None]
  - CHROMOSOMAL MUTATION [None]
  - HAEMORRHAGE [None]
  - LACERATION [None]
  - LOSS OF CONSCIOUSNESS [None]
  - PAIN IN EXTREMITY [None]
  - TRANSIENT ISCHAEMIC ATTACK [None]
